FAERS Safety Report 24437414 (Version 1)
Quarter: 2024Q4

REPORT INFORMATION
  Report Type: Spontaneous
  Country: US (occurrence: None)
  Receive Date: 20241012
  Receipt Date: 20241012
  Transmission Date: 20250115
  Serious: Yes (Hospitalization)
  Sender: Public
  Company Number: None

PATIENT
  Age: 74 Year
  Sex: Male
  Weight: 99.4 kg

DRUGS (4)
  1. FLUOROURACIL [Suspect]
     Active Substance: FLUOROURACIL
     Dates: start: 20240923
  2. LEUCOVORIN CALCIUM [Suspect]
     Active Substance: LEUCOVORIN CALCIUM
     Dates: end: 20240923
  3. NIVOLUMAB [Suspect]
     Active Substance: NIVOLUMAB
     Dates: end: 20240923
  4. ELOXATIN [Suspect]
     Active Substance: OXALIPLATIN

REACTIONS (9)
  - Sepsis [None]
  - Pneumonia [None]
  - Anaemia [None]
  - Orthostatic hypotension [None]
  - Blood potassium decreased [None]
  - Pleural effusion [None]
  - Blood creatinine increased [None]
  - Tachycardia [None]
  - Tachypnoea [None]

NARRATIVE: CASE EVENT DATE: 20241004
